FAERS Safety Report 25317474 (Version 2)
Quarter: 2025Q3

REPORT INFORMATION
  Report Type: Report from Study
  Country: US (occurrence: US)
  Receive Date: 20250515
  Receipt Date: 20250803
  Transmission Date: 20251021
  Serious: Yes (Other)
  Sender: ALEXION PHARMACEUTICALS
  Company Number: US-AstraZeneca-CH-00865043A

PATIENT
  Age: 54 Year
  Sex: Female
  Weight: 74.6 kg

DRUGS (7)
  1. TEZEPELUMAB [Suspect]
     Active Substance: TEZEPELUMAB
     Indication: Asthma
     Route: 065
  2. TEZEPELUMAB [Suspect]
     Active Substance: TEZEPELUMAB
     Route: 065
  3. PREDNISONE [Concomitant]
     Active Substance: PREDNISONE
     Route: 065
  4. BUDESONIDE [Concomitant]
     Active Substance: BUDESONIDE
  5. ESOMEPRAZOLE [Concomitant]
     Active Substance: ESOMEPRAZOLE
  6. BUDESONIDE\FORMOTEROL [Concomitant]
     Active Substance: BUDESONIDE\FORMOTEROL
  7. BENRALIZUMAB [Concomitant]
     Active Substance: BENRALIZUMAB

REACTIONS (60)
  - Atypical pneumonia [Unknown]
  - Nephrolithiasis [Unknown]
  - Ureterolithiasis [Unknown]
  - Cough [Recovering/Resolving]
  - Gastrooesophageal reflux disease [Recovered/Resolved]
  - Pyrexia [Unknown]
  - Fatigue [Unknown]
  - Decreased appetite [Unknown]
  - Secretion discharge [Unknown]
  - Illness [Unknown]
  - Nausea [Unknown]
  - Abdominal pain upper [Unknown]
  - Diarrhoea [Unknown]
  - Sinusitis [Unknown]
  - Respiratory disorder [Unknown]
  - Diabetic ketoacidosis [Unknown]
  - COVID-19 [Unknown]
  - Perfume sensitivity [Unknown]
  - Dysphonia [Unknown]
  - Blood glucose increased [Unknown]
  - Paraesthesia [Unknown]
  - Restless legs syndrome [Unknown]
  - Pain [Unknown]
  - Gait disturbance [Unknown]
  - Glycosylated haemoglobin increased [Unknown]
  - Asthenia [Unknown]
  - Tremor [Unknown]
  - Stress [Unknown]
  - Dysphonia [Unknown]
  - Chest pain [Unknown]
  - Dyspnoea [Unknown]
  - Throat irritation [Unknown]
  - Nose deformity [Unknown]
  - Illness [Unknown]
  - Pyrexia [Unknown]
  - Wheezing [Unknown]
  - Insomnia [Unknown]
  - Sinusitis [Unknown]
  - Dehydration [Unknown]
  - Abdominal pain [Unknown]
  - Parosmia [Unknown]
  - Sinus congestion [Unknown]
  - Red blood cell count decreased [Unknown]
  - Haemoglobin [Unknown]
  - Haematocrit [Unknown]
  - Mean cell volume increased [Unknown]
  - Mean cell haemoglobin increased [Unknown]
  - Platelet aggregation abnormal [Unknown]
  - Blood immunoglobulin E decreased [Unknown]
  - FEV1/FVC ratio decreased [Unknown]
  - Asthma [Unknown]
  - Cough [Unknown]
  - Bronchial hyperreactivity [Unknown]
  - Vertigo [Unknown]
  - Anxiety [Unknown]
  - Laryngeal dyskinesia [Unknown]
  - Musculoskeletal chest pain [Unknown]
  - Renal colic [Unknown]
  - Hydronephrosis [Unknown]
  - Ureterolithiasis [Unknown]

NARRATIVE: CASE EVENT DATE: 20241024
